FAERS Safety Report 9393919 (Version 1)
Quarter: 2013Q3

REPORT INFORMATION
  Report Type: Spontaneous
  Country: US (occurrence: US)
  Receive Date: 20130710
  Receipt Date: 20130710
  Transmission Date: 20140515
  Serious: No
  Sender: FDA-Public Use
  Company Number: US-009507513-1307USA002491

PATIENT
  Sex: Female

DRUGS (2)
  1. MIRALAX [Suspect]
     Indication: PRODUCT USED FOR UNKNOWN INDICATION
     Dosage: 34 G, QD
     Route: 048
  2. MIRALAX [Suspect]
     Dosage: 51 G, QD
     Route: 048
     Dates: start: 20130609

REACTIONS (3)
  - Abdominal pain [Unknown]
  - Malaise [Unknown]
  - Overdose [Unknown]
